FAERS Safety Report 19174029 (Version 2)
Quarter: 2021Q3

REPORT INFORMATION
  Report Type: Spontaneous
  Country: US (occurrence: US)
  Receive Date: 20210423
  Receipt Date: 20210729
  Transmission Date: 20211014
  Serious: No
  Sender: FDA-Public Use
  Company Number: US-PFIZER INC-2021344378

PATIENT
  Age: 43 Year
  Sex: Female
  Weight: 67.8 kg

DRUGS (8)
  1. IBRANCE [Suspect]
     Active Substance: PALBOCICLIB
     Indication: BREAST CANCER METASTATIC
     Dosage: 125 MG, CYCLIC (DAILY FOR 21 DAYS)
     Route: 048
     Dates: start: 202012, end: 20210423
  2. XGEVA [Concomitant]
     Active Substance: DENOSUMAB
     Dosage: 120MG/1.7 VIAL
  3. IBRANCE [Suspect]
     Active Substance: PALBOCICLIB
     Dosage: 100 MG, CYCLIC (DAILY, FOR 21 DAYS, OFF 7 DAYS)
     Route: 048
     Dates: start: 20210506
  4. ZOLADEX GYN [Concomitant]
     Active Substance: GOSERELIN ACETATE
     Dosage: 10.8 MG
  5. VITAMIN D3 [Concomitant]
     Active Substance: CHOLECALCIFEROL
     Dosage: 100000/G POWDER
  6. FASLODEX [Concomitant]
     Active Substance: FULVESTRANT
     Dosage: 250 MG/5ML SYRINGE
  7. CALCIUM [Concomitant]
     Active Substance: CALCIUM
     Dosage: 500(1250)
  8. VITAMIN B12 [Concomitant]
     Active Substance: CYANOCOBALAMIN
     Dosage: 1000 UG

REACTIONS (2)
  - White blood cell count decreased [Unknown]
  - Fatigue [Recovering/Resolving]
